FAERS Safety Report 9887576 (Version 1)
Quarter: 2013Q4

REPORT INFORMATION
  Report Type: Spontaneous
  Country: US (occurrence: None)
  Receive Date: 20131223
  Receipt Date: 20131223
  Transmission Date: 20140711
  Serious: No
  Sender: FDA-Public Use
  Company Number: 221208LEO

PATIENT
  Age: 59 Year
  Sex: Female

DRUGS (3)
  1. PICATO (0.015 %, GEL) [Suspect]
     Indication: PRECANCEROUS SKIN LESION
     Dosage: 1 IN 1 D, TOPICAL
     Dates: start: 20130405
  2. CRESTOR (ROSUVASTATIN) (10 MG) [Concomitant]
  3. LEVOTHYROXINE (LEVOTHYROXINE) (50 MG) [Concomitant]

REACTIONS (5)
  - Application site vesicles [None]
  - Application site exfoliation [None]
  - Application site erythema [None]
  - Application site pain [None]
  - Incorrect drug administration duration [None]
